FAERS Safety Report 8825319 (Version 1)
Quarter: 2012Q4

REPORT INFORMATION
  Report Type: 
  Country: US (occurrence: US)
  Receive Date: 20121004
  Receipt Date: 20121004
  Transmission Date: 20130627
  Serious: Yes (Other)
  Sender: FDA-Public Use
  Company Number: US-ROCHE-1133585

PATIENT
  Sex: Female

DRUGS (9)
  1. RITUXAN [Suspect]
     Indication: LYMPHOMA
     Route: 065
     Dates: end: 199904
  2. RITUXAN [Suspect]
     Indication: OFF LABEL USE
  3. CHLORAMBUCIL [Concomitant]
     Route: 048
     Dates: end: 199904
  4. VINCRISTINE [Concomitant]
     Route: 065
     Dates: end: 199904
  5. PREDNISOLONE [Concomitant]
     Route: 065
     Dates: end: 199904
  6. FLUDARABINE [Concomitant]
     Route: 065
     Dates: end: 199904
  7. CYCLOPHOSPHAMIDE [Concomitant]
     Route: 065
     Dates: end: 199904
  8. HYDROXYDAUNORUBICIN [Concomitant]
     Route: 065
     Dates: end: 199904
  9. ONCOVIN [Concomitant]
     Route: 065
     Dates: end: 199904

REACTIONS (3)
  - Vaginal haemorrhage [Unknown]
  - Night sweats [Unknown]
  - Disease progression [Unknown]
